FAERS Safety Report 23431968 (Version 1)
Quarter: 2024Q1

REPORT INFORMATION
  Report Type: Spontaneous
  Country: US (occurrence: None)
  Receive Date: 20240122
  Receipt Date: 20240122
  Transmission Date: 20240410
  Serious: No
  Sender: FDA-Public Use
  Company Number: None

PATIENT
  Age: 1 Year
  Sex: Female
  Weight: 10.7 kg

DRUGS (2)
  1. BEYFORTUS [Suspect]
     Active Substance: NIRSEVIMAB-ALIP
     Route: 030
  2. Cholecalciferol 10mcg/mL [Concomitant]
     Dates: start: 20230131, end: 20240121

REACTIONS (1)
  - Wrong patient received product [None]

NARRATIVE: CASE EVENT DATE: 20240122
